FAERS Safety Report 20394948 (Version 1)
Quarter: 2022Q1

REPORT INFORMATION
  Report Type: Report from Study
  Country: FR (occurrence: FR)
  Receive Date: 20220130
  Receipt Date: 20220130
  Transmission Date: 20220423
  Serious: Yes (Other)
  Sender: FDA-Public Use
  Company Number: FR-JAZZ-2019-FR-009015

PATIENT

DRUGS (2)
  1. DEFITELIO [Suspect]
     Active Substance: DEFIBROTIDE SODIUM
     Indication: Prophylaxis
     Dosage: 25 MG/KG/DAY
     Route: 042
     Dates: start: 20150409
  2. URSODIOL [Concomitant]
     Active Substance: URSODIOL
     Dosage: 2 TAB X2/DAY

REACTIONS (5)
  - Superficial vein thrombosis [Not Recovered/Not Resolved]
  - Epstein-Barr virus infection reactivation [Unknown]
  - Sepsis [Unknown]
  - Bacterial prostatitis [Unknown]
  - Off label use [Unknown]

NARRATIVE: CASE EVENT DATE: 20150409
